FAERS Safety Report 4889914-6 (Version None)
Quarter: 2006Q1

REPORT INFORMATION
  Report Type: 
  Country: None (occurrence: None)
  Receive Date: 20060123
  Receipt Date: 20060123
  Transmission Date: 20060701
  Serious: Yes (Disabling)
  Sender: FDA-Public Use
  Company Number: None

PATIENT
  Sex: Female
  Weight: 113.3993 kg

DRUGS (3)
  1. LEVAQUIN [Suspect]
     Indication: PHARYNGITIS
     Dosage: 500MG Q DAY PO
     Route: 048
     Dates: start: 20051214
  2. DECADRON [Suspect]
     Indication: ASTHMA
     Dosage: 10MG X 1 PO
     Route: 048
     Dates: start: 20051213
  3. PREDNISONE [Suspect]
     Indication: ASTHMA
     Dosage: 60MG X 3WKS PO
     Route: 048
     Dates: start: 20051216

REACTIONS (4)
  - INJURY [None]
  - LIGAMENT INJURY [None]
  - MUSCLE SPASMS [None]
  - PAIN [None]
